FAERS Safety Report 20832634 (Version 9)
Quarter: 2023Q1

REPORT INFORMATION
  Report Type: Spontaneous
  Country: US (occurrence: US)
  Receive Date: 20220516
  Receipt Date: 20230214
  Transmission Date: 20230418
  Serious: Yes (Other)
  Sender: FDA-Public Use
  Company Number: US-GLAXOSMITHKLINE-US2022AMR078162

PATIENT
  Age: 57 Year
  Sex: Female

DRUGS (3)
  1. ZEJULA [Suspect]
     Active Substance: NIRAPARIB
     Indication: Ovarian cancer
     Dosage: 200 MG, QD
     Dates: start: 202105, end: 20220510
  2. ZEJULA [Suspect]
     Active Substance: NIRAPARIB
     Dosage: 200 MG, QD, BEDTIME
     Dates: end: 20220609
  3. ZEJULA [Suspect]
     Active Substance: NIRAPARIB
     Dosage: 200 MG, QD
     Dates: start: 20220805

REACTIONS (23)
  - Osteomyelitis [Unknown]
  - Headache [Not Recovered/Not Resolved]
  - Dry throat [Not Recovered/Not Resolved]
  - Gingival pain [Unknown]
  - Toothache [Recovering/Resolving]
  - Back pain [Unknown]
  - Dry skin [Not Recovered/Not Resolved]
  - Pruritus [Recovered/Resolved]
  - Muscle spasms [Recovering/Resolving]
  - Tooth extraction [Recovered/Resolved]
  - Infection [Not Recovered/Not Resolved]
  - Pain [Recovering/Resolving]
  - Drainage [Recovering/Resolving]
  - Weight increased [Not Recovered/Not Resolved]
  - Joint swelling [Recovered/Resolved]
  - Dry mouth [Recovering/Resolving]
  - Balance disorder [Not Recovered/Not Resolved]
  - Haemoglobin increased [Not Recovered/Not Resolved]
  - Loose tooth [Recovered/Resolved]
  - Oral infection [Recovered/Resolved]
  - Rash pustular [Unknown]
  - Dental caries [Unknown]
  - Glycosylated haemoglobin increased [Unknown]

NARRATIVE: CASE EVENT DATE: 20220801
